FAERS Safety Report 8160783-4 (Version None)
Quarter: 2012Q1

REPORT INFORMATION
  Report Type: 
  Country: None (occurrence: None)
  Receive Date: 20120223
  Receipt Date: 20120214
  Transmission Date: 20120608
  Serious: Yes (Other)
  Sender: FDA-Public Use
  Company Number: PHHY2012BR001337

PATIENT
  Sex: Female

DRUGS (2)
  1. ANTIBIOTICS [Concomitant]
  2. ONBREZ [Suspect]
     Indication: TOBACCO USER
     Dosage: 150 UG, UNK

REACTIONS (4)
  - CHRONIC OBSTRUCTIVE PULMONARY DISEASE [None]
  - NASOPHARYNGITIS [None]
  - INFLUENZA [None]
  - FATIGUE [None]
